FAERS Safety Report 5530990-5 (Version None)
Quarter: 2007Q4

REPORT INFORMATION
  Report Type: 
  Country: None (occurrence: None)
  Receive Date: 20071130
  Receipt Date: 20071115
  Transmission Date: 20080405
  Serious: Yes (Life-Threatening, Hospitalization)
  Sender: FDA-Public Use
  Company Number: JP-ASTRAZENECA-2007SE06044

PATIENT
  Age: 27893 Day
  Sex: Female
  Weight: 60 kg

DRUGS (11)
  1. BLOPRESS TABLETS 4 [Suspect]
     Indication: HYPERTENSION
     Route: 048
     Dates: start: 20071016, end: 20071026
  2. NORVASC [Concomitant]
     Indication: HYPERTENSION
     Route: 048
     Dates: start: 19990727
  3. MAITOZIN [Concomitant]
     Indication: CEREBRAL INFARCTION
     Route: 048
     Dates: start: 20050816
  4. ASPARA-CA [Concomitant]
     Indication: OSTEOPOROSIS
     Route: 048
     Dates: start: 20070626
  5. ALOSENN [Concomitant]
     Indication: CONSTIPATION
     Route: 048
     Dates: start: 20070124
  6. BONALON [Concomitant]
     Indication: OSTEOPOROSIS
     Route: 048
     Dates: start: 20070620
  7. URSO 250 [Concomitant]
     Indication: HEPATITIS C
     Route: 048
     Dates: start: 20060516
  8. MOHRUS TAPE [Concomitant]
     Indication: BACK PAIN
     Route: 062
     Dates: start: 20051014
  9. HYALEIN [Concomitant]
     Indication: DRY EYE
     Route: 047
     Dates: start: 20050119
  10. LIVERES [Concomitant]
     Indication: HEPATITIS C
     Route: 041
     Dates: start: 20060516
  11. STRONG NEO-MINOPHAGEN C [Concomitant]
     Indication: HEPATITIS C
     Route: 041
     Dates: start: 20060516

REACTIONS (4)
  - HAEMOGLOBIN DECREASED [None]
  - PLATELET COUNT DECREASED [None]
  - RED BLOOD CELL COUNT DECREASED [None]
  - WHITE BLOOD CELL COUNT DECREASED [None]
